FAERS Safety Report 18396877 (Version 1)
Quarter: 2020Q4

REPORT INFORMATION
  Report Type: Spontaneous
  Country: NL (occurrence: NL)
  Receive Date: 20201019
  Receipt Date: 20201019
  Transmission Date: 20210114
  Serious: Yes (Other)
  Sender: FDA-Public Use
  Company Number: NL-TEVA-2020-NL-1838684

PATIENT
  Sex: Male
  Weight: 95 kg

DRUGS (2)
  1. APIXABAN TABLET 5MG / ELIQUIS TABLET FILMOMHULD 5MG [Concomitant]
     Dosage: 5 MG, THERAPY START DATE AND END DATE: ASKED BUT UNKNOWN
  2. ENALAPRIL TABLET 20MG / BRAND NAME NOT SPECIFIED [Suspect]
     Active Substance: ENALAPRIL
     Indication: HYPERTENSION
     Dosage: 1
     Dates: start: 20200812, end: 20200820

REACTIONS (3)
  - Dysuria [Recovered/Resolved]
  - Cough [Recovered/Resolved]
  - Urinary retention [Recovered/Resolved]
